FAERS Safety Report 7549576-6 (Version None)
Quarter: 2011Q2

REPORT INFORMATION
  Report Type: 
  Country: None (occurrence: None)
  Receive Date: 20110615
  Receipt Date: 20110524
  Transmission Date: 20111010
  Serious: Yes (Hospitalization, Disabling, Other)
  Sender: FDA-Public Use
  Company Number: A0912267A

PATIENT
  Age: 51 Year
  Sex: Male
  Weight: 110 kg

DRUGS (10)
  1. AVANDIA [Suspect]
     Dosage: 4MG PER DAY
     Route: 048
     Dates: start: 20070101, end: 20100519
  2. VERAMYST [Suspect]
     Indication: NASAL CONGESTION
     Dosage: 2SPR TWICE PER DAY
     Route: 045
     Dates: start: 20110415, end: 20110419
  3. AGGRENOX [Concomitant]
     Dates: start: 20100101
  4. OMEPRAZOLE [Concomitant]
  5. LISINOPRIL [Concomitant]
  6. METFORMIN HCL [Concomitant]
     Dates: start: 20060101
  7. HUMALOG [Concomitant]
  8. LANTUS [Concomitant]
  9. WELLBUTRIN [Suspect]
     Dosage: 12.5MG TWICE PER DAY
     Route: 048
     Dates: end: 20110421
  10. PROTONIX [Concomitant]

REACTIONS (24)
  - HEPATIC PAIN [None]
  - CEREBROVASCULAR ACCIDENT [None]
  - REVERSIBLE ISCHAEMIC NEUROLOGICAL DEFICIT [None]
  - EPISTAXIS [None]
  - CHOLECYSTECTOMY [None]
  - DIZZINESS [None]
  - OBSTRUCTION [None]
  - HEADACHE [None]
  - VISION BLURRED [None]
  - DIARRHOEA [None]
  - OFF LABEL USE [None]
  - TRANSIENT ISCHAEMIC ATTACK [None]
  - LIVER INJURY [None]
  - LIVER DISORDER [None]
  - ABDOMINAL DISCOMFORT [None]
  - ABDOMINAL PAIN [None]
  - ANXIETY [None]
  - AGITATION [None]
  - CONFUSIONAL STATE [None]
  - PALPITATIONS [None]
  - ADVERSE EVENT [None]
  - DIABETES MELLITUS INADEQUATE CONTROL [None]
  - GASTRIC OPERATION [None]
  - LIVER OPERATION [None]
